FAERS Safety Report 15044604 (Version 7)
Quarter: 2018Q4

REPORT INFORMATION
  Report Type: Report from Study
  Country: US (occurrence: US)
  Receive Date: 20180621
  Receipt Date: 20181226
  Transmission Date: 20190204
  Serious: Yes (Hospitalization, Other)
  Sender: FDA-Public Use
  Company Number: US-PFIZER INC-2018231892

PATIENT
  Age: 85 Year
  Sex: Female

DRUGS (3)
  1. AROMASIN [Concomitant]
     Active Substance: EXEMESTANE
     Dosage: UNK
  2. FASLODEX [Concomitant]
     Active Substance: FULVESTRANT
     Dosage: UNK
  3. IBRANCE [Suspect]
     Active Substance: PALBOCICLIB
     Indication: BREAST CANCER FEMALE
     Dosage: 125 MG, CYCLIC (DAILY FOR 21 DAYS IN A ROW, FOLLOWED BY 7 DAYS OFF EVERY 28 DAYS)
     Route: 048
     Dates: start: 20180523, end: 201806

REACTIONS (16)
  - Haemoglobin decreased [Unknown]
  - Red blood cell count decreased [Recovering/Resolving]
  - Urinary tract infection [Recovered/Resolved]
  - Fatigue [Recovering/Resolving]
  - Hypersomnia [Unknown]
  - Decreased appetite [Unknown]
  - Weight decreased [Unknown]
  - Dyspnoea [Recovering/Resolving]
  - Bone marrow failure [Recovering/Resolving]
  - Dyspnoea exertional [Unknown]
  - Diarrhoea [Recovering/Resolving]
  - Back pain [Unknown]
  - Hallucination, visual [Unknown]
  - White blood cell count decreased [Recovering/Resolving]
  - Asthenia [Recovering/Resolving]
  - Arthralgia [Unknown]

NARRATIVE: CASE EVENT DATE: 2018
